FAERS Safety Report 7235043-6 (Version None)
Quarter: 2011Q1

REPORT INFORMATION
  Report Type: 
  Country: None (occurrence: None)
  Receive Date: 20110120
  Receipt Date: 20110113
  Transmission Date: 20110831
  Serious: Yes (Other)
  Sender: FDA-Public Use
  Company Number: SE-BAXTER-2011BH001208

PATIENT
  Sex: Male
  Weight: 91 kg

DRUGS (6)
  1. GAMMAGARD LIQUID [Suspect]
     Indication: RESPIRATORY TRACT INFECTION
     Route: 042
  2. GAMMAGARD LIQUID [Suspect]
     Route: 042
     Dates: start: 20110112, end: 20110112
  3. GAMMAGARD LIQUID [Suspect]
     Indication: SECONDARY IMMUNODEFICIENCY
     Route: 042
  4. GAMMAGARD LIQUID [Suspect]
     Route: 042
     Dates: start: 20110112, end: 20110112
  5. GAMMAGARD LIQUID [Suspect]
     Indication: CHRONIC LYMPHOCYTIC LEUKAEMIA
     Route: 042
  6. GAMMAGARD LIQUID [Suspect]
     Route: 042
     Dates: start: 20110112, end: 20110112

REACTIONS (6)
  - FLUSHING [None]
  - MALAISE [None]
  - BLOOD PRESSURE DECREASED [None]
  - BRONCHOSPASM [None]
  - VISION BLURRED [None]
  - HYPERHIDROSIS [None]
